FAERS Safety Report 7387555-2 (Version None)
Quarter: 2011Q1

REPORT INFORMATION
  Report Type: 
  Country: None (occurrence: None)
  Receive Date: 20110331
  Receipt Date: 20110225
  Transmission Date: 20110831
  Serious: Yes (Hospitalization)
  Sender: FDA-Public Use
  Company Number: US-BIOGENIDEC-2011BI000229

PATIENT
  Age: 48 Year
  Sex: Female

DRUGS (1)
  1. TYSABRI [Suspect]
     Indication: MULTIPLE SCLEROSIS
     Route: 042
     Dates: start: 20091125

REACTIONS (6)
  - ASTHENIA [None]
  - BODY TEMPERATURE DECREASED [None]
  - COMA [None]
  - CONFUSIONAL STATE [None]
  - FALL [None]
  - URINARY TRACT INFECTION [None]
